FAERS Safety Report 18954201 (Version 1)
Quarter: 2021Q1

REPORT INFORMATION
  Report Type: Spontaneous
  Country: US (occurrence: US)
  Receive Date: 20210301
  Receipt Date: 20210301
  Transmission Date: 20210420
  Serious: Yes (Other)
  Sender: FDA-Public Use
  Company Number: US-009507513-2102USA008999

PATIENT
  Sex: Female

DRUGS (2)
  1. KEYTRUDA [Suspect]
     Active Substance: PEMBROLIZUMAB
     Indication: CARDIAC NEOPLASM UNSPECIFIED
  2. KEYTRUDA [Suspect]
     Active Substance: PEMBROLIZUMAB
     Indication: OVARIAN CANCER
     Route: 042

REACTIONS (5)
  - Hysterectomy [Unknown]
  - Product use in unapproved indication [Unknown]
  - Renal injury [Unknown]
  - Skin injury [Unknown]
  - Memory impairment [Unknown]
